FAERS Safety Report 8962374 (Version 1)
Quarter: 2012Q4

REPORT INFORMATION
  Report Type: 
  Country: US (occurrence: None)
  Receive Date: 20121211
  Receipt Date: 20121211
  Transmission Date: 20130627
  Serious: Yes (Hospitalization)
  Sender: FDA-Public Use
  Company Number: None

PATIENT
  Sex: Male
  Weight: 113.4 kg

DRUGS (1)
  1. GEMCITABINE HYDROCHLORIDE [Suspect]
     Dosage: 2280mg IV infused 250ml NS infused over 30 min on days 1 and 8.

REACTIONS (3)
  - Dyspnoea [None]
  - Dyspnoea [None]
  - Pulmonary thrombosis [None]
